FAERS Safety Report 10775110 (Version 3)
Quarter: 2015Q3

REPORT INFORMATION
  Report Type: Spontaneous
  Country: US (occurrence: US)
  Receive Date: 20150209
  Receipt Date: 20150817
  Transmission Date: 20151125
  Serious: Yes (Other)
  Sender: FDA-Public Use
  Company Number: US-CELGENEUS-USA-2014115065

PATIENT
  Sex: Male
  Weight: 88.08 kg

DRUGS (1)
  1. THALOMID [Suspect]
     Active Substance: THALIDOMIDE
     Indication: PLASMA CELL MYELOMA
     Dosage: 200 MILLIGRAM
     Route: 048
     Dates: start: 20131203

REACTIONS (6)
  - Skin exfoliation [Unknown]
  - Fungal infection [Unknown]
  - Skin discolouration [Unknown]
  - Asthenia [Unknown]
  - Syncope [Unknown]
  - Rash pruritic [Unknown]
